FAERS Safety Report 5535125-0 (Version None)
Quarter: 2007Q4

REPORT INFORMATION
  Report Type: 
  Country: None (occurrence: None)
  Receive Date: 20071203
  Receipt Date: 20071129
  Transmission Date: 20080405
  Serious: Yes (Life-Threatening)
  Sender: FDA-Public Use
  Company Number: TCI2007A02727

PATIENT
  Age: 60 Year
  Sex: Male

DRUGS (6)
  1. LANSOPRAZOLE [Suspect]
     Indication: GASTRIC ULCER
     Dosage: 60 MG (30 MG, 2 IN 1 D)  INTRAVENOUS DRIP
     Route: 041
     Dates: start: 20070603
  2. NOVO HEPARIN (HEPARIN SODIUM)(INJECTION) [Concomitant]
  3. SIGMART(NICORANDIL) (INJECTION) [Concomitant]
  4. PENTCILLIN (PIPERACILLIN SODIUM) (INJECTION) [Concomitant]
  5. DIPRIVAN [Concomitant]
  6. HANP (CARPERITIDE) (INJECTION) [Concomitant]

REACTIONS (1)
  - VENTRICULAR FIBRILLATION [None]
